FAERS Safety Report 7301391-4 (Version None)
Quarter: 2011Q1

REPORT INFORMATION
  Report Type: 
  Country: None (occurrence: None)
  Receive Date: 20110218
  Receipt Date: 20110207
  Transmission Date: 20110831
  Serious: Yes (Hospitalization, Other)
  Sender: FDA-Public Use
  Company Number: PHHY2011FR10795

PATIENT
  Sex: Female

DRUGS (7)
  1. DI-ANTALVIC [Suspect]
     Dosage: UNK
     Route: 048
     Dates: start: 20020101, end: 20101208
  2. HUMIRA [Suspect]
     Indication: RHEUMATOID ARTHRITIS
     Dosage: 1 DF, BIW
     Dates: start: 20101001, end: 20101208
  3. CORTICOSTEROID [Concomitant]
     Indication: RHEUMATOID ARTHRITIS
     Dosage: 10 MG, PER DAY
  4. TOPALGIC [Concomitant]
     Indication: PAIN
     Dosage: UNK
  5. VOLTAREN [Suspect]
     Indication: RHEUMATOID ARTHRITIS
     Dosage: UNK
     Route: 048
     Dates: end: 20101208
  6. METHOTREXATE [Suspect]
     Indication: RHEUMATOID ARTHRITIS
     Dosage: UNK
     Route: 058
     Dates: start: 19910101, end: 20101208
  7. PERINDOPRIL [Concomitant]
     Indication: HYPERTENSION
     Dosage: UNK

REACTIONS (12)
  - INFLAMMATION [None]
  - AUTOIMMUNE HEPATITIS [None]
  - CYTOLYTIC HEPATITIS [None]
  - VIRAL INFECTION [None]
  - HEPATOMEGALY [None]
  - CHRONIC HEPATITIS [None]
  - HEPATIC FIBROSIS [None]
  - CUSHINGOID [None]
  - HEPATIC STEATOSIS [None]
  - RENAL HYPERTROPHY [None]
  - CHOLELITHIASIS [None]
  - COUGH [None]
